FAERS Safety Report 7127997-3 (Version None)
Quarter: 2010Q4

REPORT INFORMATION
  Report Type: 
  Country: None (occurrence: None)
  Receive Date: 20101130
  Receipt Date: 20101116
  Transmission Date: 20110411
  Serious: Yes (Hospitalization)
  Sender: FDA-Public Use
  Company Number: PHHY2010BR78741

PATIENT
  Sex: Male

DRUGS (1)
  1. DIOVAN [Suspect]
     Dosage: 320/10 MG
     Route: 048

REACTIONS (3)
  - BLOOD PRESSURE FLUCTUATION [None]
  - CORONARY ARTERY BYPASS [None]
  - HYPERTENSION [None]
